FAERS Safety Report 16048698 (Version 3)
Quarter: 2019Q4

REPORT INFORMATION
  Report Type: Spontaneous
  Country: JP (occurrence: JP)
  Receive Date: 20190307
  Receipt Date: 20191015
  Transmission Date: 20200122
  Serious: Yes (Hospitalization)
  Sender: FDA-Public Use
  Company Number: JP-ASTRAZENECA-2019SE20048

PATIENT
  Age: 26916 Day
  Sex: Male
  Weight: 58 kg

DRUGS (9)
  1. DILTIAZEM HYDROCHLORIDE. [Concomitant]
     Active Substance: DILTIAZEM HYDROCHLORIDE
     Indication: PRINZMETAL ANGINA
     Route: 048
  2. TAGRISSO [Suspect]
     Active Substance: OSIMERTINIB
     Indication: NON-SMALL CELL LUNG CANCER
     Route: 048
     Dates: start: 20181114, end: 20190107
  3. TALION [Concomitant]
     Indication: RHINITIS ALLERGIC
     Route: 048
  4. LIXIANA [Concomitant]
     Active Substance: EDOXABAN TOSYLATE
     Indication: VENOUS THROMBOSIS LIMB
     Dosage: DOSE UNKNOWN
     Route: 065
     Dates: start: 20180228
  5. ZOLPIDEM TARTRATE. [Concomitant]
     Active Substance: ZOLPIDEM TARTRATE
     Indication: INSOMNIA
     Route: 048
  6. MAGNESIUM OXIDE. [Concomitant]
     Active Substance: MAGNESIUM OXIDE
     Indication: CONSTIPATION
     Route: 048
  7. CALONAL [Concomitant]
     Active Substance: ACETAMINOPHEN
     Indication: PAIN
     Route: 048
     Dates: start: 20180110
  8. LYRICA [Concomitant]
     Active Substance: PREGABALIN
     Indication: PAIN
     Route: 048
     Dates: start: 20180110
  9. DEZOLAM [Concomitant]
     Active Substance: ETIZOLAM
     Indication: INSOMNIA
     Route: 048

REACTIONS (2)
  - Interstitial lung disease [Recovering/Resolving]
  - Dental caries [Recovering/Resolving]

NARRATIVE: CASE EVENT DATE: 20190108
